FAERS Safety Report 24214131 (Version 1)
Quarter: 2024Q3

REPORT INFORMATION
  Report Type: Spontaneous
  Country: US (occurrence: None)
  Receive Date: 20240815
  Receipt Date: 20240815
  Transmission Date: 20241016
  Serious: No
  Sender: Public
  Company Number: None

PATIENT
  Age: 72 Year
  Sex: Female
  Weight: 68.04 kg

DRUGS (3)
  1. AZELASTINE HYDROCHLORIDE [Suspect]
     Active Substance: AZELASTINE HYDROCHLORIDE
     Indication: Upper-airway cough syndrome
     Dosage: OTHER STRENGTH : 0.1% (137 MCG);? ?1 SPRAY IN EACH NOSTRIL 2X A DAY   TWICE DAILY  SPRAY?
     Route: 045
     Dates: start: 20240724, end: 20240725
  2. AZITHROMYCIN [Concomitant]
  3. VITAMIN D [Concomitant]
     Active Substance: VITAMIN D NOS

REACTIONS (5)
  - Fatigue [None]
  - Somnolence [None]
  - Somnolence [None]
  - Fear of disease [None]
  - Malaise [None]

NARRATIVE: CASE EVENT DATE: 20240724
